FAERS Safety Report 5367453-6 (Version None)
Quarter: 2007Q2

REPORT INFORMATION
  Report Type: 
  Country: None (occurrence: None)
  Receive Date: 20070622
  Receipt Date: 20061010
  Transmission Date: 20071010
  Serious: No
  Sender: FDA-Public Use
  Company Number: US-ASTRAZENECA-2006UW19638

PATIENT
  Sex: Female
  Weight: 49.9 kg

DRUGS (2)
  1. PULMICORT TURBHALER [Suspect]
     Indication: ASTHMA
     Route: 055
     Dates: start: 20060401
  2. SINGULAIR [Concomitant]

REACTIONS (1)
  - CONDITION AGGRAVATED [None]
